FAERS Safety Report 20016160 (Version 1)
Quarter: 2021Q4

REPORT INFORMATION
  Report Type: Spontaneous
  Country: US (occurrence: None)
  Receive Date: 20211103
  Receipt Date: 20211103
  Transmission Date: 20220303
  Serious: Yes (Hospitalization)
  Sender: FDA-Public Use
  Company Number: None

PATIENT
  Age: 66 Year
  Sex: Male

DRUGS (1)
  1. CARBAMAZEPINE [Suspect]
     Active Substance: CARBAMAZEPINE
     Dates: start: 20190101, end: 20211010

REACTIONS (4)
  - Toxic encephalopathy [None]
  - Asthenia [None]
  - Dysarthria [None]
  - Toxicity to various agents [None]

NARRATIVE: CASE EVENT DATE: 20211010
